FAERS Safety Report 6244455-9 (Version None)
Quarter: 2009Q2

REPORT INFORMATION
  Report Type: 
  Country: None (occurrence: None)
  Receive Date: 20090623
  Receipt Date: 20090612
  Transmission Date: 20091009
  Serious: Yes (Other)
  Sender: FDA-Public Use
  Company Number: 2009AL004012

PATIENT
  Age: 22 Year
  Sex: Male

DRUGS (1)
  1. RANITIDINE [Suspect]
     Dosage: PO
     Route: 048
     Dates: start: 20090508, end: 20090525

REACTIONS (2)
  - OBSTRUCTIVE AIRWAYS DISORDER [None]
  - OROPHARYNGEAL SWELLING [None]
